FAERS Safety Report 15169364 (Version 2)
Quarter: 2024Q3

REPORT INFORMATION
  Report Type: Spontaneous
  Country: SE (occurrence: SE)
  Receive Date: 20180720
  Receipt Date: 20240930
  Transmission Date: 20241017
  Serious: Yes (Hospitalization, Other)
  Sender: TEVA
  Company Number: None

PATIENT
  Age: 32 Year
  Sex: Female
  Weight: 39 kg

DRUGS (14)
  1. QUETIAPINE [Suspect]
     Active Substance: QUETIAPINE
     Indication: Product used for unknown indication
     Dosage: UNK
     Route: 065
  2. RITALIN [Suspect]
     Active Substance: METHYLPHENIDATE HYDROCHLORIDE
     Indication: Product used for unknown indication
     Dosage: 140 MG, QD, EACH DAY
     Route: 048
     Dates: start: 2009
  3. ZOLOFT [Suspect]
     Active Substance: SERTRALINE HYDROCHLORIDE
     Indication: Burnout syndrome
     Dosage: UNK
     Route: 065
     Dates: start: 20020101
  4. ATARAX [Suspect]
     Active Substance: HYDROXYZINE HYDROCHLORIDE
     Indication: Product used for unknown indication
     Dosage: UNK: ATARAX /00058402/
     Route: 065
  5. IMOVANE [Suspect]
     Active Substance: ZOPICLONE
     Indication: Product used for unknown indication
     Route: 065
     Dates: start: 2009
  6. IMOVANE [Suspect]
     Active Substance: ZOPICLONE
     Indication: Product used for unknown indication
     Dosage: 7.5 MG, QD, 1 BEFORE BEDTIME
     Route: 048
     Dates: start: 2009
  7. VENLAFAXINE HYDROCHLORIDE [Suspect]
     Active Substance: VENLAFAXINE HYDROCHLORIDE
     Indication: Anxiety
     Dosage: UNK
     Route: 065
     Dates: start: 2010
  8. VENLAFAXINE HYDROCHLORIDE [Suspect]
     Active Substance: VENLAFAXINE HYDROCHLORIDE
     Indication: Anxiety
     Route: 065
     Dates: start: 2010
  9. VENLAFAXINE HYDROCHLORIDE [Suspect]
     Active Substance: VENLAFAXINE HYDROCHLORIDE
     Indication: Anxiety
     Route: 065
     Dates: start: 2010
  10. VENLAFAXINE HYDROCHLORIDE [Suspect]
     Active Substance: VENLAFAXINE HYDROCHLORIDE
     Indication: Anxiety
     Dosage: UNK
     Route: 065
     Dates: start: 20100101
  11. SERTRALINE [Suspect]
     Active Substance: SERTRALINE HYDROCHLORIDE
     Indication: Depression
     Dosage: UNK, SERTRALINE HCL
     Route: 065
     Dates: start: 2000
  12. LYRICA [Suspect]
     Active Substance: PREGABALIN
     Indication: Mental disorder
     Dosage: UNK
     Route: 065
     Dates: start: 20100101
  13. LYRICA [Suspect]
     Active Substance: PREGABALIN
     Indication: Mental disorder
     Dosage: UNK
     Route: 065
     Dates: start: 2010
  14. LYRICA [Suspect]
     Active Substance: PREGABALIN
     Indication: Mental disorder
     Route: 065

REACTIONS (36)
  - Tremor [Unknown]
  - Back pain [Not Recovered/Not Resolved]
  - Coeliac disease [Not Recovered/Not Resolved]
  - Arthralgia [Not Recovered/Not Resolved]
  - Malaise [Unknown]
  - Gastrointestinal disorder [Not Recovered/Not Resolved]
  - Nausea [Recovered/Resolved]
  - Libido decreased [Not Recovered/Not Resolved]
  - Eating disorder [Not Recovered/Not Resolved]
  - Drug ineffective [Unknown]
  - Fear [Unknown]
  - Diplopia [Not Recovered/Not Resolved]
  - Emotional distress [Unknown]
  - Tinnitus [Not Recovered/Not Resolved]
  - Renal disorder [Unknown]
  - Weight decreased [Unknown]
  - Cardiac disorder [Unknown]
  - Disturbance in attention [Unknown]
  - Pain [Not Recovered/Not Resolved]
  - Psychiatric symptom [Unknown]
  - Negative thoughts [Recovered/Resolved]
  - Dysuria [Not Recovered/Not Resolved]
  - Panic attack [Not Recovered/Not Resolved]
  - Nightmare [Unknown]
  - Somnambulism [Recovered/Resolved]
  - Product use in unapproved indication [Unknown]
  - Rash [Unknown]
  - Burnout syndrome [Unknown]
  - Social anxiety disorder [Not Recovered/Not Resolved]
  - Pelvic inflammatory disease [Not Recovered/Not Resolved]
  - Depression [Unknown]
  - Tremor [Unknown]
  - Cardiac disorder [Unknown]
  - Pain in extremity [Not Recovered/Not Resolved]
  - Panic disorder [Unknown]
  - Antisocial behaviour [Unknown]

NARRATIVE: CASE EVENT DATE: 20000101
